FAERS Safety Report 22741867 (Version 2)
Quarter: 2023Q4

REPORT INFORMATION
  Report Type: Other
  Country: CA (occurrence: None)
  Receive Date: 20230724
  Receipt Date: 20231113
  Transmission Date: 20240110
  Serious: Yes (Life-Threatening, Hospitalization)
  Sender: FDA-Public Use
  Company Number: CA-ROCHE-3392208

PATIENT
  Age: 61 Year
  Sex: Female

DRUGS (2)
  1. MYCOPHENOLIC ACID [Suspect]
     Active Substance: MYCOPHENOLIC ACID
     Indication: Prophylaxis against transplant rejection
     Route: 065
  2. TACROLIMUS [Suspect]
     Active Substance: TACROLIMUS
     Indication: Prophylaxis against transplant rejection
     Route: 065

REACTIONS (4)
  - Brain abscess [Recovered/Resolved]
  - Cerebral nocardiosis [Recovered/Resolved]
  - Cerebral toxoplasmosis [Recovered/Resolved]
  - Encephalomalacia [Unknown]
